FAERS Safety Report 6569140-5 (Version None)
Quarter: 2010Q1

REPORT INFORMATION
  Report Type: 
  Country: None (occurrence: None)
  Receive Date: 20100203
  Receipt Date: 20100125
  Transmission Date: 20100710
  Serious: Yes (Other)
  Sender: FDA-Public Use
  Company Number: JP-GENENTECH-297476

PATIENT

DRUGS (5)
  1. RITUXIMAB [Suspect]
     Indication: DIFFUSE LARGE B-CELL LYMPHOMA
     Dosage: 375 MG/M2, Q2W
     Route: 041
  2. TETRAHYDROPYRANYL ADRIAMYCIN [Suspect]
     Indication: DIFFUSE LARGE B-CELL LYMPHOMA
     Dosage: 50 MG/M2, Q2W
     Route: 041
  3. CYCLOPHOSPHAMIDE [Suspect]
     Indication: DIFFUSE LARGE B-CELL LYMPHOMA
     Dosage: 750 MG/M2, Q2W
     Route: 041
  4. VINCRISTINE [Suspect]
     Indication: DIFFUSE LARGE B-CELL LYMPHOMA
     Dosage: 1.4 MG/M2, Q2W
     Route: 040
  5. PREDNISOLONE [Suspect]
     Indication: DIFFUSE LARGE B-CELL LYMPHOMA
     Dosage: 100 MG, Q2W
     Route: 048

REACTIONS (7)
  - ANAEMIA [None]
  - CARDIOTOXICITY [None]
  - FEBRILE NEUTROPENIA [None]
  - INFECTION [None]
  - NEUTROPENIA [None]
  - PULMONARY TOXICITY [None]
  - THROMBOCYTOPENIA [None]
